APPROVED DRUG PRODUCT: CLINORIL
Active Ingredient: SULINDAC
Strength: 150MG **Federal Register determination that product was not discontinued or withdrawn for safety or effectiveness reasons**
Dosage Form/Route: TABLET;ORAL
Application: N017911 | Product #001
Applicant: MERCK RESEARCH LABORATORIES DIV MERCK CO INC
Approved: Approved Prior to Jan 1, 1982 | RLD: Yes | RS: No | Type: DISCN